FAERS Safety Report 7630571-3 (Version None)
Quarter: 2011Q3

REPORT INFORMATION
  Report Type: 
  Country: None (occurrence: None)
  Receive Date: 20110722
  Receipt Date: 20110713
  Transmission Date: 20111222
  Serious: Yes (Disabling)
  Sender: FDA-Public Use
  Company Number: JP-ASTRAZENECA-2011SE42229

PATIENT
  Age: 63 Year
  Sex: Male

DRUGS (1)
  1. XYLOCAINE [Suspect]
     Route: 065

REACTIONS (1)
  - DIPLEGIA [None]
